FAERS Safety Report 10042963 (Version 2)
Quarter: 2014Q1

REPORT INFORMATION
  Report Type: Report from Study
  Country: CA (occurrence: CA)
  Receive Date: 20140328
  Receipt Date: 20140328
  Transmission Date: 20141002
  Serious: Yes (Hospitalization)
  Sender: FDA-Public Use
  Company Number: CA-AMGEN-CANNI2013032715

PATIENT
  Age: 81 Year
  Sex: Female

DRUGS (4)
  1. DENOSUMAB [Suspect]
     Indication: OSTEOPOROSIS
     Dosage: 60 MG, Q6MO
     Route: 058
     Dates: start: 20120308
  2. SYMBICORT [Concomitant]
     Dosage: 400 MUG, BID
     Route: 055
     Dates: start: 200403
  3. SPIRIVA [Concomitant]
     Dosage: 18 MUG, QD
     Route: 055
     Dates: start: 20070207
  4. OXYGEN [Concomitant]
     Dosage: UNK UNK, AS NECESSARY
     Route: 055
     Dates: start: 20130325

REACTIONS (1)
  - Chronic obstructive pulmonary disease [Recovered/Resolved]
